FAERS Safety Report 9230341 (Version 1)
Quarter: 2013Q2

REPORT INFORMATION
  Report Type: Spontaneous
  Country: FR (occurrence: FR)
  Receive Date: 20130415
  Receipt Date: 20130415
  Transmission Date: 20140414
  Serious: Yes (Hospitalization)
  Sender: FDA-Public Use
  Company Number: FR-SANOFI-AVENTIS-2013SA037181

PATIENT
  Age: 77 Year
  Sex: Male

DRUGS (7)
  1. LASILIX RETARD [Suspect]
     Indication: LYMPHOEDEMA
     Route: 048
     Dates: start: 201208, end: 201209
  2. LASILIX RETARD [Suspect]
     Indication: LYMPHOEDEMA
     Route: 065
     Dates: start: 20120904, end: 20120906
  3. AUGMENTIN [Concomitant]
     Indication: DYSPNOEA
     Dates: start: 201208
  4. OFLOCET [Concomitant]
     Indication: DYSPNOEA
     Dates: start: 201208
  5. LOVENOX [Concomitant]
     Indication: PROPHYLAXIS
     Route: 058
     Dates: start: 201208
  6. APROVEL [Concomitant]
     Indication: HYPERTENSION
     Route: 048
  7. NOVORAPID [Concomitant]
     Indication: DIABETES MELLITUS
     Route: 058

REACTIONS (3)
  - Hypotonia [Recovered/Resolved]
  - Hyponatraemia [Recovered/Resolved]
  - Fall [None]
